FAERS Safety Report 12465071 (Version 1)
Quarter: 2016Q2

REPORT INFORMATION
  Report Type: Spontaneous
  Country: JP (occurrence: JP)
  Receive Date: 20160614
  Receipt Date: 20160614
  Transmission Date: 20160815
  Serious: Yes (Other)
  Sender: FDA-Public Use
  Company Number: PHJP1997JP003994

PATIENT
  Age: 36 Year
  Sex: Male
  Weight: 62 kg

DRUGS (5)
  1. PENTCILLIN [Concomitant]
     Active Substance: PIPERACILLIN SODIUM
     Indication: INFECTION PROPHYLAXIS
     Dosage: 2G
     Route: 065
     Dates: start: 19970924, end: 19970930
  2. SANDIMMUN SIM+SOLINF [Suspect]
     Active Substance: CYCLOSPORINE
     Indication: RENAL TRANSPLANT
  3. GASTER//FAMOTIDINE [Concomitant]
     Indication: PRODUCT USED FOR UNKNOWN INDICATION
     Dosage: 40MG
     Route: 065
     Dates: start: 19970924, end: 19970930
  4. SOLU-MEDROL [Concomitant]
     Active Substance: METHYLPREDNISOLONE SODIUM SUCCINATE
     Indication: PRODUCT USED FOR UNKNOWN INDICATION
     Dosage: 500MG
     Route: 065
     Dates: start: 19970924
  5. SANDIMMUN SIM+SOLINF [Suspect]
     Active Substance: CYCLOSPORINE
     Indication: TRANSPLANT REJECTION
     Dosage: 250 MG, UNK
     Route: 065
     Dates: start: 19970924

REACTIONS (1)
  - Shock [Recovered/Resolved]

NARRATIVE: CASE EVENT DATE: 19970924
